FAERS Safety Report 23172866 (Version 2)
Quarter: 2023Q4

REPORT INFORMATION
  Report Type: Spontaneous
  Country: US (occurrence: US)
  Receive Date: 20231110
  Receipt Date: 20231219
  Transmission Date: 20240109
  Serious: No
  Sender: FDA-Public Use
  Company Number: US-INCYTE CORPORATION-2023IN011233

PATIENT

DRUGS (2)
  1. OPZELURA [Suspect]
     Active Substance: RUXOLITINIB PHOSPHATE
     Indication: Eczema
     Dosage: HE USES 2 TIMES A DAY BUT WHEN IT IS NOT THAT BAD HE USES ONLY ONCE A DAY
     Route: 065
  2. OPZELURA [Suspect]
     Active Substance: RUXOLITINIB PHOSPHATE
     Dosage: HE USES 2 TIMES A DAY BUT WHEN IT IS NOT THAT BAD HE USES ONLY ONCE A DAY
     Route: 065

REACTIONS (1)
  - No adverse event [Unknown]
